FAERS Safety Report 9834298 (Version 1)
Quarter: 2014Q1

REPORT INFORMATION
  Report Type: Report from Study
  Country: US (occurrence: US)
  Receive Date: 20140122
  Receipt Date: 20140122
  Transmission Date: 20141002
  Serious: Yes (Hospitalization)
  Sender: FDA-Public Use
  Company Number: US-JNJFOC-20140109296

PATIENT
  Age: 17 Year
  Sex: Male
  Weight: 72.6 kg

DRUGS (5)
  1. REMICADE [Suspect]
     Indication: CROHN^S DISEASE
     Route: 042
     Dates: start: 20090610
  2. PREDNISONE [Concomitant]
     Route: 065
  3. CALCIUM CARBONATE [Concomitant]
     Route: 065
  4. MAGNESIUM [Concomitant]
     Route: 065
  5. AMITRIPTYLINE [Concomitant]
     Route: 065

REACTIONS (1)
  - Anal abscess [Recovered/Resolved]
